FAERS Safety Report 16979976 (Version 1)
Quarter: 2019Q4

REPORT INFORMATION
  Report Type: Report from Study
  Country: US (occurrence: US)
  Receive Date: 20191031
  Receipt Date: 20191031
  Transmission Date: 20200122
  Serious: Yes (Other)
  Sender: FDA-Public Use
  Company Number: US-ENDO PHARMACEUTICALS INC-2019-109190

PATIENT
  Sex: Male

DRUGS (2)
  1. XIAFLEX [Suspect]
     Active Substance: COLLAGENASE CLOSTRIDIUM HISTOLYTICUM
     Indication: PEYRONIE^S DISEASE
     Dosage: UNK UNKNOWN, 6TH INJECTION
     Route: 026
     Dates: start: 20191021
  2. XIAFLEX [Suspect]
     Active Substance: COLLAGENASE CLOSTRIDIUM HISTOLYTICUM
     Dosage: UNK UNKNOWN, 5 INJECTIONS TOTAL
     Route: 026

REACTIONS (4)
  - Contusion [Unknown]
  - Swelling [Recovering/Resolving]
  - Dysuria [Unknown]
  - Syncope [Unknown]

NARRATIVE: CASE EVENT DATE: 20191021
